FAERS Safety Report 7435602-1 (Version None)
Quarter: 2011Q2

REPORT INFORMATION
  Report Type: 
  Country: None (occurrence: None)
  Receive Date: 20110418
  Receipt Date: 20110406
  Transmission Date: 20111010
  Serious: Yes (Death, Hospitalization)
  Sender: FDA-Public Use
  Company Number: UTC-006186

PATIENT
  Age: 73 Year
  Sex: Male

DRUGS (2)
  1. DIURETICS (DIURETICS) [Concomitant]
  2. REMODULIN [Suspect]
     Indication: PULMONARY HYPERTENSION
     Dosage: 89.28 UG/KG (0.062 UG/KG,1 IN 1 MIN),INTRAVENOUS
     Route: 042
     Dates: start: 20070706

REACTIONS (1)
  - DEATH [None]
